FAERS Safety Report 4981268-X (Version None)
Quarter: 2006Q1

REPORT INFORMATION
  Report Type: 
  Country: None (occurrence: None)
  Receive Date: 20060227
  Receipt Date: 20051216
  Transmission Date: 20060701
  Serious: Yes (Hospitalization)
  Sender: FDA-Public Use
  Company Number: WAES 0401USA01057

PATIENT
  Age: 70 Year
  Sex: Male
  Weight: 88.905 kg

DRUGS (2)
  1. ZOCOR [Suspect]
     Indication: HYPERCHOLESTEROLAEMIA
     Dosage: 80 MG/DAILY/PO
     Route: 048
     Dates: start: 20021201, end: 20031231
  2. TIAZAC [Concomitant]

REACTIONS (5)
  - BLOOD CREATINE PHOSPHOKINASE INCREASED [None]
  - COLONIC POLYP [None]
  - GOUT [None]
  - MYOPATHY TOXIC [None]
  - PERIORBITAL OEDEMA [None]
